FAERS Safety Report 5056597-4 (Version None)
Quarter: 2006Q3

REPORT INFORMATION
  Report Type: 
  Country: None (occurrence: None)
  Receive Date: 20060720
  Receipt Date: 20060329
  Transmission Date: 20061208
  Serious: Yes (Disabling)
  Sender: FDA-Public Use
  Company Number: FR-MERCK-0603FRA00113

PATIENT
  Age: 42 Year
  Sex: Female

DRUGS (2)
  1. NOROXIN [Suspect]
     Indication: URINARY TRACT INFECTION
     Route: 048
     Dates: start: 20050827, end: 20050903
  2. FOSFOMYCIN TROMETHAMINE [Concomitant]
     Indication: URINARY TRACT INFECTION
     Route: 048
     Dates: start: 20050827, end: 20050827

REACTIONS (4)
  - MUSCLE RIGIDITY [None]
  - PAIN [None]
  - PRESCRIBED OVERDOSE [None]
  - TENDONITIS [None]
